FAERS Safety Report 4766042-1 (Version None)
Quarter: 2005Q3

REPORT INFORMATION
  Report Type: 
  Country: None (occurrence: None)
  Receive Date: 20050912
  Receipt Date: 20050831
  Transmission Date: 20060218
  Serious: Yes (Hospitalization)
  Sender: FDA-Public Use
  Company Number: IT-GLAXOSMITHKLINE-B0393003A

PATIENT
  Age: 26 Year
  Sex: Female

DRUGS (3)
  1. LAMIVUDINE [Suspect]
     Indication: HIV INFECTION
     Dosage: 1TAB PER DAY
     Route: 048
     Dates: start: 20040612, end: 20050612
  2. DIDANOSINE [Concomitant]
     Indication: HIV INFECTION
     Dosage: 250MG PER DAY
     Dates: start: 20040612, end: 20050612
  3. NELFINAVIR [Concomitant]
     Indication: HIV INFECTION
     Dosage: 250MG PER DAY
     Dates: start: 20040612, end: 20050612

REACTIONS (1)
  - ECZEMA [None]
